FAERS Safety Report 10227805 (Version 1)
Quarter: 2014Q2

REPORT INFORMATION
  Report Type: Spontaneous
  Country: None (occurrence: None)
  Receive Date: 20140606
  Receipt Date: 20140606
  Transmission Date: 20141212
  Serious: Yes (Life-Threatening)
  Sender: FDA-Public Use
  Company Number: None

PATIENT
  Age: 74 Year
  Sex: Male

DRUGS (2)
  1. DIABEX/DIABEX XR [Suspect]
     Indication: TYPE 2 DIABETES MELLITUS
     Dosage: 500MG X 2 ONCE DAILY TAKEN BY MOUTH
     Route: 048
  2. DIABEX/DIABEX XR [Suspect]
     Indication: DIABETES MELLITUS INADEQUATE CONTROL
     Dosage: 500MG X 2 ONCE DAILY TAKEN BY MOUTH
     Route: 048

REACTIONS (9)
  - Asthenia [None]
  - Malaise [None]
  - Vitamin D deficiency [None]
  - Vitamin B12 deficiency [None]
  - Fatigue [None]
  - Asthenia [None]
  - Gait disturbance [None]
  - Myalgia [None]
  - Renal failure chronic [None]
